FAERS Safety Report 14505639 (Version 1)
Quarter: 2018Q1

REPORT INFORMATION
  Report Type: Spontaneous
  Country: JP (occurrence: JP)
  Receive Date: 20180208
  Receipt Date: 20180208
  Transmission Date: 20180509
  Serious: Yes (Other)
  Sender: FDA-Public Use
  Company Number: JP-CELGENEUS-JPN-20180201176

PATIENT
  Age: 70 Year
  Sex: Female

DRUGS (2)
  1. LENADEX [Suspect]
     Active Substance: DEXAMETHASONE ACETATE
     Indication: POEMS SYNDROME
     Route: 048
     Dates: start: 20170626, end: 20171229
  2. POMALYST [Suspect]
     Active Substance: POMALIDOMIDE
     Indication: POEMS SYNDROME
     Dosage: 2 MILLIGRAM
     Route: 048
     Dates: start: 20170626, end: 20171229

REACTIONS (1)
  - Cholelithiasis [Recovering/Resolving]
